FAERS Safety Report 9026340 (Version 1)
Quarter: 2012Q4

REPORT INFORMATION
  Report Type: Spontaneous
  Country: DE (occurrence: None)
  Receive Date: 20121211
  Receipt Date: 20121211
  Transmission Date: 20130627
  Serious: Yes (Hospitalization)
  Sender: FDA-Public Use
  Company Number: SE12415646

PATIENT
  Sex: Female

DRUGS (5)
  1. BASIRON AC [Suspect]
     Dates: start: 20120910, end: 201211
  2. BASIRON AC [Suspect]
     Dates: start: 20120910, end: 20120917
  3. DERMATOLOGICAL SUN PROTECTION [Suspect]
     Route: 061
     Dates: start: 20120917, end: 20120917
  4. MOISTURIZER SPF15 [Suspect]
  5. VITAMIN A ACID [Suspect]

REACTIONS (4)
  - Skin discolouration [None]
  - Skin exfoliation [None]
  - Dermatitis [None]
  - Erythema [None]
